FAERS Safety Report 5540105-5 (Version None)
Quarter: 2007Q4

REPORT INFORMATION
  Report Type: 
  Country: None (occurrence: None)
  Receive Date: 20071208
  Receipt Date: 20070607
  Transmission Date: 20080405
  Serious: No
  Sender: FDA-Public Use
  Company Number: US-AMGEN-KDL228523

PATIENT
  Sex: Male

DRUGS (3)
  1. ENBREL [Suspect]
     Indication: RHEUMATOID ARTHRITIS
     Route: 058
     Dates: start: 20070506
  2. PLAQUENIL [Concomitant]
     Route: 048
     Dates: start: 20010601
  3. ARAVA [Concomitant]
     Route: 048
     Dates: start: 20070101

REACTIONS (1)
  - INFLUENZA LIKE ILLNESS [None]
